FAERS Safety Report 8568949-6 (Version None)
Quarter: 2012Q3

REPORT INFORMATION
  Report Type: 
  Country: None (occurrence: None)
  Receive Date: 20120803
  Receipt Date: 20120420
  Transmission Date: 20120928
  Serious: No
  Sender: FDA-Public Use
  Company Number: US-ABBOTT-12P-163-0927750-00

PATIENT
  Sex: Male
  Weight: 92.162 kg

DRUGS (7)
  1. CITALOPRAM HYDROBROMIDE [Concomitant]
     Indication: PRODUCT USED FOR UNKNOWN INDICATION
  2. NIASPAN [Suspect]
     Indication: LOW DENSITY LIPOPROTEIN
     Dosage: EVERY NIGHT
     Dates: start: 20120419
  3. ASPIRIN [Concomitant]
     Indication: PRODUCT USED FOR UNKNOWN INDICATION
  4. HAZAAR [Concomitant]
     Indication: PRODUCT USED FOR UNKNOWN INDICATION
  5. NIASPAN [Suspect]
     Indication: ILL-DEFINED DISORDER
  6. MULTIVITAMINS (CENTRUM SILVER) WITH NIACIN 20MG [Concomitant]
     Indication: PRODUCT USED FOR UNKNOWN INDICATION
  7. COENZYME Q10 [Concomitant]
     Indication: PRODUCT USED FOR UNKNOWN INDICATION

REACTIONS (2)
  - GASTROINTESTINAL SOUNDS ABNORMAL [None]
  - ABDOMINAL DISCOMFORT [None]
